FAERS Safety Report 12638984 (Version 4)
Quarter: 2018Q2

REPORT INFORMATION
  Report Type: Spontaneous
  Country: IL (occurrence: IL)
  Receive Date: 20160809
  Receipt Date: 20180405
  Transmission Date: 20180711
  Serious: Yes (Hospitalization)
  Sender: FDA-Public Use
  Company Number: IL-BIOMARINAP-IL-2016-110418

PATIENT
  Sex: Female
  Weight: 22 kg

DRUGS (1)
  1. VIMIZIM [Suspect]
     Active Substance: ELOSULFASE ALFA
     Indication: MUCOPOLYSACCHARIDOSIS IV
     Dosage: UNK, QW
     Route: 042
     Dates: start: 2014

REACTIONS (5)
  - Gait disturbance [Unknown]
  - Knee deformity [Unknown]
  - Joint swelling [Recovered/Resolved]
  - Congenital joint malformation [Unknown]
  - Arthralgia [Recovered/Resolved]
